FAERS Safety Report 25719906 (Version 1)
Quarter: 2025Q3

REPORT INFORMATION
  Report Type: Spontaneous
  Country: EU (occurrence: EU)
  Receive Date: 20250825
  Receipt Date: 20250825
  Transmission Date: 20251020
  Serious: Yes (Hospitalization, Other)
  Sender: JOHNSON AND JOHNSON
  Company Number: None

PATIENT
  Age: 64 Year
  Sex: Male

DRUGS (10)
  1. GUSELKUMAB [Suspect]
     Active Substance: GUSELKUMAB
     Indication: Psoriatic arthropathy
     Route: 058
     Dates: start: 20240320, end: 20250714
  2. GUSELKUMAB [Suspect]
     Active Substance: GUSELKUMAB
  3. GUSELKUMAB [Suspect]
     Active Substance: GUSELKUMAB
  4. METHOTREXATE SODIUM [Suspect]
     Active Substance: METHOTREXATE SODIUM
     Indication: Psoriatic arthropathy
     Route: 058
     Dates: start: 20231129, end: 20250707
  5. XTANDI 40 MG FILM-COATED TABLETS, 112 tablets [Concomitant]
     Indication: Product used for unknown indication
     Route: 048
     Dates: start: 20231025
  6. BINOCRIT, 5000 IU/0.5 ml, INJECTION SOLUTION IN A PRE-FILLED SYRINGE, [Concomitant]
     Indication: Product used for unknown indication
     Route: 058
     Dates: start: 20250627
  7. DECAPEPTYL SEMESTRAL 22.5 MG POWDER AND SOLVENT FOR INJECTABLE EXTENDE [Concomitant]
     Indication: Product used for unknown indication
     Route: 030
     Dates: start: 20230913
  8. ZALDIAR 37.5 mg/325 mg FILM-COATED TABLETS, 20 tablets [Concomitant]
     Indication: Product used for unknown indication
     Route: 048
     Dates: start: 20200707
  9. PARACETAMOL CINFA 650 MG TABLETS EFG 40 tablets [Concomitant]
     Indication: Product used for unknown indication
     Route: 048
     Dates: start: 20200122
  10. PROLIA 60 mg INJECTABLE SOLUTION IN PRE-FILLED SYRINGE, 1 pre-filled s [Concomitant]
     Indication: Product used for unknown indication
     Route: 058
     Dates: start: 20170720

REACTIONS (1)
  - Hypersensitivity pneumonitis [Recovering/Resolving]

NARRATIVE: CASE EVENT DATE: 20250714
